FAERS Safety Report 25447607 (Version 1)
Quarter: 2025Q2

REPORT INFORMATION
  Report Type: Report from Study
  Country: US (occurrence: US)
  Receive Date: 20250617
  Receipt Date: 20250617
  Transmission Date: 20250717
  Serious: Yes (Hospitalization, Other)
  Sender: ABBVIE
  Company Number: US-ABBVIE-6326724

PATIENT
  Sex: Male

DRUGS (5)
  1. VENETOCLAX [Suspect]
     Active Substance: VENETOCLAX
     Indication: Acute myeloid leukaemia
     Dosage: FOR 21 DAYS IN A 28 DAY CYCLE FOR THE FIRST CYCLE
     Route: 048
     Dates: start: 20241118, end: 202412
  2. VENETOCLAX [Suspect]
     Active Substance: VENETOCLAX
     Indication: Acute myeloid leukaemia
     Dosage: FOR 28 DAYS IN A 28 DAY CYCLE FOR THE SECOND CYCLE?FIRST ADMIN DATE: DEC 2024
     Route: 048
     Dates: end: 202501
  3. VENETOCLAX [Suspect]
     Active Substance: VENETOCLAX
     Indication: Acute myeloid leukaemia
     Dosage: FOR 28 DAYS IN A 32 DAY CYCLE FOR THE THIRD CYCLE?FIRST ADMIN DATE: JAN 2025
     Route: 048
     Dates: end: 202502
  4. VENETOCLAX [Suspect]
     Active Substance: VENETOCLAX
     Indication: Acute myeloid leukaemia
     Dosage: FOR 2 DAYS IN A 2 DAY CYCLE FOR THE FOURTH CYCLE?FIRST ADMIN DATE: FEB 2025
     Route: 048
     Dates: end: 20250314
  5. CYTARABINE [Concomitant]
     Active Substance: CYTARABINE
     Indication: Product used for unknown indication
     Dates: start: 20241118

REACTIONS (11)
  - Atrial fibrillation [Unknown]
  - Acute myeloid leukaemia [Unknown]
  - Nausea [Unknown]
  - Drug ineffective [Unknown]
  - Thrombocytopenia [Unknown]
  - Cytopenia [Unknown]
  - Neutropenia [Unknown]
  - Hypotension [Unknown]
  - Cardiac failure congestive [Unknown]
  - Fatigue [Unknown]
  - Headache [Unknown]
